FAERS Safety Report 14631769 (Version 3)
Quarter: 2018Q3

REPORT INFORMATION
  Report Type: Spontaneous
  Country: CZ (occurrence: CZ)
  Receive Date: 20180313
  Receipt Date: 20180905
  Transmission Date: 20181010
  Serious: Yes (Hospitalization, Other)
  Sender: FDA-Public Use
  Company Number: CZ-APOTEX-2018AP007807

PATIENT
  Age: 71 Year

DRUGS (2)
  1. METFORMIN [Suspect]
     Active Substance: METFORMIN HYDROCHLORIDE
     Indication: TYPE 2 DIABETES MELLITUS
     Dosage: 500 UNK, UNKNOWN
     Route: 048
  2. METFORMIN [Suspect]
     Active Substance: METFORMIN HYDROCHLORIDE
     Dosage: DOSE: 500
     Route: 048

REACTIONS (16)
  - Metabolic acidosis [Unknown]
  - PO2 decreased [Unknown]
  - Base excess decreased [Unknown]
  - Blood chloride decreased [Unknown]
  - Creatinine renal clearance decreased [Unknown]
  - Gastrointestinal disorder [Unknown]
  - Blood potassium decreased [Unknown]
  - PCO2 decreased [Unknown]
  - Blood pH decreased [Unknown]
  - Anion gap increased [Unknown]
  - Lactic acidosis [Unknown]
  - Hypovolaemia [Unknown]
  - Acute kidney injury [Unknown]
  - Toxicity to various agents [Unknown]
  - Blood creatinine increased [Unknown]
  - Blood bicarbonate decreased [Unknown]

NARRATIVE: CASE EVENT DATE: 2015
